FAERS Safety Report 24312644 (Version 2)
Quarter: 2024Q4

REPORT INFORMATION
  Report Type: Report from Study
  Country: US (occurrence: US)
  Receive Date: 20240912
  Receipt Date: 20241008
  Transmission Date: 20250115
  Serious: Yes (Hospitalization, Other)
  Sender: ALNYLAM PHARMACEUTICALS
  Company Number: US-ALNYLAM PHARMACEUTICALS, INC.-ALN-2024-005055

PATIENT

DRUGS (1)
  1. GIVLAARI [Suspect]
     Active Substance: GIVOSIRAN SODIUM
     Indication: Porphyria acute
     Dosage: 318.18 (UNITS NOT REPORTED), MONTHLY
     Route: 058
     Dates: start: 20240219, end: 20240219

REACTIONS (2)
  - Porphyria acute [Unknown]
  - Pneumonia aspiration [Unknown]
